FAERS Safety Report 11698976 (Version 1)
Quarter: 2015Q4

REPORT INFORMATION
  Report Type: Spontaneous
  Country: US (occurrence: US)
  Receive Date: 20151104
  Receipt Date: 20151104
  Transmission Date: 20160304
  Serious: No
  Sender: FDA-Public Use
  Company Number: US-ELI_LILLY_AND_COMPANY-US201101003354

PATIENT
  Sex: Male

DRUGS (2)
  1. FLOMAX [Interacting]
     Active Substance: TAMSULOSIN HYDROCHLORIDE
  2. FORTEO [Suspect]
     Active Substance: TERIPARATIDE
     Dosage: UNK, UNKNOWN
     Route: 065

REACTIONS (2)
  - Micturition disorder [Unknown]
  - Inhibitory drug interaction [Unknown]
